FAERS Safety Report 8218654-0 (Version None)
Quarter: 2012Q1

REPORT INFORMATION
  Report Type: 
  Country: None (occurrence: None)
  Receive Date: 20120319
  Receipt Date: 20120312
  Transmission Date: 20120608
  Serious: Yes (Other)
  Sender: FDA-Public Use
  Company Number: PHHY2012BR022954

PATIENT
  Sex: Male
  Weight: 93 kg

DRUGS (2)
  1. DIOVAN HCT [Suspect]
     Indication: HYPERTENSION
     Dosage: 1 DF (320MG VALS/12.5MG HYDROCHLOROTHIAZIDE), DAILY
     Route: 048
  2. METAMUCIL-2 [Concomitant]
     Indication: DIVERTICULUM
     Dosage: 1 SACHET EVERY THREE DAYS
     Route: 048

REACTIONS (8)
  - BLOOD PRESSURE INCREASED [None]
  - BLOOD TRIGLYCERIDES INCREASED [None]
  - CEREBROVASCULAR ACCIDENT [None]
  - NECK PAIN [None]
  - PARAESTHESIA [None]
  - ABDOMINAL DISCOMFORT [None]
  - BLOOD URIC ACID INCREASED [None]
  - SINUSITIS [None]
